FAERS Safety Report 9704011 (Version 1)
Quarter: 2013Q4

REPORT INFORMATION
  Report Type: Spontaneous
  Country: US (occurrence: US)
  Receive Date: 20131122
  Receipt Date: 20131122
  Transmission Date: 20140711
  Serious: Yes (Hospitalization)
  Sender: FDA-Public Use
  Company Number: US-BAYER-2013-142367

PATIENT
  Age: 35 Year
  Sex: Female

DRUGS (4)
  1. YAZ [Suspect]
  2. NORVASC [Concomitant]
     Dosage: 5 MG, UNK
  3. MULTIVITAMIN [Concomitant]
  4. PREDNISONE [Concomitant]
     Indication: DYSPNOEA

REACTIONS (1)
  - Pulmonary embolism [Recovered/Resolved]
